FAERS Safety Report 15308275 (Version 1)
Quarter: 2018Q3

REPORT INFORMATION
  Report Type: Spontaneous
  Country: US (occurrence: US)
  Receive Date: 20180822
  Receipt Date: 20180822
  Transmission Date: 20181010
  Serious: No
  Sender: FDA-Public Use
  Company Number: US-BIOGEN-2018BI00622932

PATIENT
  Age: 39 Year
  Sex: Female

DRUGS (12)
  1. CLARITIN [Concomitant]
     Active Substance: LORATADINE
     Indication: PRODUCT USED FOR UNKNOWN INDICATION
     Route: 048
  2. ONDANSETRON [Concomitant]
     Active Substance: ONDANSETRON
     Indication: PRODUCT USED FOR UNKNOWN INDICATION
     Dosage: AS NEEDED FOR NAUSEA
     Route: 048
  3. PROMETHAZINE [Concomitant]
     Active Substance: PROMETHAZINE\PROMETHAZINE HYDROCHLORIDE
     Indication: PRODUCT USED FOR UNKNOWN INDICATION
     Dosage: AS NEEDED FOR NAUSEA
     Route: 048
  4. LYSTEDA [Concomitant]
     Active Substance: TRANEXAMIC ACID
     Indication: PRODUCT USED FOR UNKNOWN INDICATION
     Dosage: TAKES ONLY WHEN ON HER CYCLE
     Route: 048
  5. POTASSIUM [Concomitant]
     Active Substance: POTASSIUM
     Indication: PRODUCT USED FOR UNKNOWN INDICATION
     Dosage: WHENEVER SHE REMEMBERS
     Route: 048
  6. TYSABRI [Suspect]
     Active Substance: NATALIZUMAB
     Indication: MULTIPLE SCLEROSIS
     Route: 065
  7. VITAMIN B12 [Concomitant]
     Active Substance: CYANOCOBALAMIN
     Indication: PRODUCT USED FOR UNKNOWN INDICATION
     Dosage: 2 TABLETS SL DAILY
     Route: 060
  8. VITAMIN D2 [Concomitant]
     Active Substance: ERGOCALCIFEROL
     Indication: PRODUCT USED FOR UNKNOWN INDICATION
     Route: 048
  9. PROBIOTICS [Concomitant]
     Active Substance: PROBIOTICS NOS
     Indication: PRODUCT USED FOR UNKNOWN INDICATION
     Route: 048
  10. HYDROCODONE/ACETAMINOPHEN [Concomitant]
     Active Substance: ACETAMINOPHEN\HYDROCODONE
     Indication: PRODUCT USED FOR UNKNOWN INDICATION
     Dosage: 5MG?325MG, AS NEEDED FOR PAIN
     Route: 048
  11. MAGNESIUM GLUCONATE [Concomitant]
     Active Substance: MAGNESIUM GLUCONATE
     Indication: PRODUCT USED FOR UNKNOWN INDICATION
     Route: 048
  12. BACTRIM [Concomitant]
     Active Substance: SULFAMETHOXAZOLE\TRIMETHOPRIM
     Indication: PRODUCT USED FOR UNKNOWN INDICATION
     Dosage: 400MG?80MG
     Route: 048

REACTIONS (1)
  - Iron deficiency [Unknown]

NARRATIVE: CASE EVENT DATE: 201508
